FAERS Safety Report 8463059-0 (Version None)
Quarter: 2012Q2

REPORT INFORMATION
  Report Type: 
  Country: None (occurrence: None)
  Receive Date: 20120323
  Receipt Date: 20110926
  Transmission Date: 20120825
  Serious: Yes (Hospitalization)
  Sender: FDA-Public Use
  Company Number: 163-21880-11083620

PATIENT
  Age: 83 Year
  Sex: Female

DRUGS (2)
  1. REVLIMID [Suspect]
     Indication: MULTIPLE MYELOMA
     Dosage: 10 MG, 1 IN 1 D, PO
     Dates: start: 20110701, end: 20110801
  2. REVLIMID [Suspect]
     Dosage: 5 MG, 1 IN 1D, PO
     Dates: start: 20110801, end: 20110101

REACTIONS (4)
  - NEUTROPHIL COUNT DECREASED [None]
  - PYREXIA [None]
  - OEDEMA PERIPHERAL [None]
  - WHITE BLOOD CELL COUNT DECREASED [None]
